FAERS Safety Report 5932901-7 (Version None)
Quarter: 2008Q4

REPORT INFORMATION
  Report Type: 
  Country: None (occurrence: None)
  Receive Date: 20081023
  Receipt Date: 20081014
  Transmission Date: 20090506
  Serious: Yes (Hospitalization)
  Sender: FDA-Public Use
  Company Number: 2008BI027386

PATIENT
  Age: 41 Year
  Sex: Female

DRUGS (9)
  1. AVONEX [Suspect]
     Indication: MULTIPLE SCLEROSIS
     Dosage: 30 A?G; QW; IM
     Route: 030
     Dates: start: 20030106, end: 20031001
  2. AVONEX [Suspect]
     Indication: MULTIPLE SCLEROSIS
     Dosage: 30 A?G; QW; IM
     Route: 030
     Dates: start: 20031001, end: 20080804
  3. AVONEX [Suspect]
     Indication: MULTIPLE SCLEROSIS
     Dosage: 30 A?G; QW; IM
     Route: 030
     Dates: start: 20081014
  4. ZOLOFT [Concomitant]
  5. SEROPRAM [Concomitant]
  6. RIVOTRIL [Concomitant]
  7. MYOLASTAN [Concomitant]
  8. ADVIL [Concomitant]
  9. MECLIZINE HCL [Concomitant]

REACTIONS (5)
  - ANXIETY [None]
  - CHOLELITHIASIS [None]
  - DRUG WITHDRAWAL SYNDROME [None]
  - PANCREATITIS NECROTISING [None]
  - PLEURAL EFFUSION [None]
